FAERS Safety Report 8506101-0 (Version None)
Quarter: 2012Q3

REPORT INFORMATION
  Report Type: 
  Country: None (occurrence: None)
  Receive Date: 20120712
  Receipt Date: 20120628
  Transmission Date: 20120928
  Serious: No
  Sender: FDA-Public Use
  Company Number: US-009507513-1206USA02643

PATIENT

DRUGS (2)
  1. LIPITOR [Concomitant]
  2. ZETIA [Suspect]
     Indication: BLOOD CHOLESTEROL
     Dosage: 10 MG, QD
     Route: 048
     Dates: start: 20110322, end: 20111101

REACTIONS (2)
  - FLATULENCE [None]
  - ALOPECIA [None]
